FAERS Safety Report 17210550 (Version 2)
Quarter: 2020Q1

REPORT INFORMATION
  Report Type: Spontaneous
  Country: JP (occurrence: JP)
  Receive Date: 20191227
  Receipt Date: 20200210
  Transmission Date: 20200409
  Serious: Yes (Hospitalization)
  Sender: FDA-Public Use
  Company Number: JP-TAIHO ONCOLOGY  INC-JPTT190280

PATIENT
  Age: 62 Year
  Sex: Male
  Weight: 69.7 kg

DRUGS (6)
  1. LONSURF [Suspect]
     Active Substance: TIPIRACIL HYDROCHLORIDE\TRIFLURIDINE
     Indication: RECTAL CANCER METASTATIC
     Dosage: DETAILS NOT REPORTED, ABOUT 10 DOSING DAYS
     Route: 048
     Dates: start: 20190913, end: 20191011
  2. AVASTIN [Suspect]
     Active Substance: BEVACIZUMAB
     Indication: RECTAL CANCER METASTATIC
     Dosage: 400 MG/DAY, DETAILS NOT REPORTED, 2 DOSING DAYS
     Route: 041
     Dates: start: 20190913, end: 20191011
  3. FENTOS [Concomitant]
     Active Substance: FENTANYL
     Route: 061
  4. LANSOPRAZOLE. [Concomitant]
     Active Substance: LANSOPRAZOLE
     Route: 048
  5. MAINTATE [Concomitant]
     Active Substance: BISOPROLOL FUMARATE
     Route: 048
  6. DEPAS [Concomitant]
     Route: 048

REACTIONS (3)
  - Bone marrow failure [Recovering/Resolving]
  - Disseminated intravascular coagulation [Recovering/Resolving]
  - Infection [Unknown]

NARRATIVE: CASE EVENT DATE: 20191025
